FAERS Safety Report 19226267 (Version 3)
Quarter: 2022Q2

REPORT INFORMATION
  Report Type: Spontaneous
  Country: JP (occurrence: JP)
  Receive Date: 20210506
  Receipt Date: 20220624
  Transmission Date: 20220721
  Serious: Yes (Hospitalization)
  Sender: FDA-Public Use
  Company Number: JP-TEVA-2021-JP-1906980

PATIENT
  Age: 54 Year
  Sex: Female

DRUGS (12)
  1. CARVEDILOL [Suspect]
     Active Substance: CARVEDILOL
     Indication: Cardiomyopathy
     Dosage: 2.5 MILLIGRAM DAILY;
     Route: 065
  2. CARVEDILOL [Suspect]
     Active Substance: CARVEDILOL
     Indication: Cardiomyopathy
     Route: 065
  3. ENALAPRIL [Suspect]
     Active Substance: ENALAPRIL
     Indication: Cardiomyopathy
     Dosage: 2.5 MILLIGRAM DAILY;
     Route: 065
  4. FUROSEMIDE [Suspect]
     Active Substance: FUROSEMIDE
     Indication: Cardiomyopathy
     Dosage: 20 MILLIGRAM DAILY;
     Route: 065
  5. SPIRONOLACTONE [Suspect]
     Active Substance: SPIRONOLACTONE
     Indication: Cardiomyopathy
     Dosage: 50 MILLIGRAM DAILY;
     Route: 065
  6. PACLITAXEL [Suspect]
     Active Substance: PACLITAXEL
     Indication: Breast cancer metastatic
     Dosage: 24 CYCLES
     Route: 065
  7. BEVACIZUMAB [Suspect]
     Active Substance: BEVACIZUMAB
     Indication: Breast cancer metastatic
     Dosage: 24 CYCLES
     Route: 065
  8. EPIRUBICIN [Suspect]
     Active Substance: EPIRUBICIN
     Indication: Breast cancer metastatic
     Dosage: EVERY 21 DAYS, 8 CYCLES
     Route: 065
  9. PIMOBENDAN [Suspect]
     Active Substance: PIMOBENDAN
     Indication: Cardiomyopathy
     Dosage: 5 MILLIGRAM DAILY;
     Route: 048
  10. ANASTROZOLE [Concomitant]
     Active Substance: ANASTROZOLE
     Indication: Breast cancer metastatic
     Route: 065
  11. CYCLOPHOSPHAMIDE [Concomitant]
     Active Substance: CYCLOPHOSPHAMIDE
     Indication: Breast cancer metastatic
     Dosage: EVERY 21 DAYS, 8 CYCLES
     Route: 065
  12. FLUOROURACIL [Concomitant]
     Active Substance: FLUOROURACIL
     Indication: Breast cancer metastatic
     Dosage: 21 DAYS, 8 CYCLES
     Route: 065

REACTIONS (3)
  - Cardiomyopathy [Recovering/Resolving]
  - Cardiomegaly [Unknown]
  - Drug ineffective [Unknown]
